FAERS Safety Report 10991229 (Version 2)
Quarter: 2015Q2

REPORT INFORMATION
  Report Type: Spontaneous
  Country: IL (occurrence: IL)
  Receive Date: 20150406
  Receipt Date: 20150409
  Transmission Date: 20150821
  Serious: Yes (Hospitalization)
  Sender: FDA-Public Use
  Company Number: IL-SA-2015SA040753

PATIENT
  Age: 43 Year
  Sex: Female

DRUGS (2)
  1. STILNOX [Suspect]
     Active Substance: ZOLPIDEM TARTRATE
     Indication: INSOMNIA
     Route: 048
  2. STILNOX [Suspect]
     Active Substance: ZOLPIDEM TARTRATE
     Indication: INSOMNIA
     Route: 048

REACTIONS (9)
  - Dizziness [Recovered/Resolved]
  - Visual impairment [Recovered/Resolved]
  - Vomiting [Recovered/Resolved]
  - Extra dose administered [Unknown]
  - Diplopia [Recovered/Resolved]
  - Memory impairment [Recovered/Resolved]
  - Vision blurred [Recovered/Resolved]
  - Balance disorder [Recovered/Resolved]
  - Vertebral lesion [Recovered/Resolved]
